FAERS Safety Report 13714063 (Version 2)
Quarter: 2017Q3

REPORT INFORMATION
  Report Type: Other
  Country: CA (occurrence: CA)
  Receive Date: 20170704
  Receipt Date: 20170801
  Transmission Date: 20171127
  Serious: Yes (Hospitalization, Other)
  Sender: FDA-Public Use
  Company Number: CA-APOTEX-2017AP013667

PATIENT
  Age: 62 Year
  Sex: Male

DRUGS (7)
  1. APO-QUETIAPINE [Suspect]
     Active Substance: QUETIAPINE
     Indication: AGITATION
     Dosage: 50 MG, 1 EVERY 6 HOURS
     Route: 065
  2. APO-HALOPERIDOL [Suspect]
     Active Substance: HALOPERIDOL
     Indication: AGITATION
     Dosage: 4 MG, UNK
     Route: 065
  3. APO-METOCLOP [Suspect]
     Active Substance: METOCLOPRAMIDE HYDROCHLORIDE
     Indication: MALABSORPTION
     Dosage: 50 MG, 1 EVERY 6 HOURS
     Route: 065
  4. LORAZEPAM. [Suspect]
     Active Substance: LORAZEPAM
     Dosage: UNK MG, UNK
     Route: 030
  5. APO-MIDAZOLAM INJECTABLE 1 MG/ML [Suspect]
     Active Substance: MIDAZOLAM HYDROCHLORIDE
     Indication: CLONUS
     Dosage: 8 MG, UNK
     Route: 030
  6. APO-MIDAZOLAM INJECTABLE 1 MG/ML [Suspect]
     Active Substance: MIDAZOLAM HYDROCHLORIDE
     Dosage: 6.5 MG, UNK
     Route: 030
  7. LORAZEPAM. [Suspect]
     Active Substance: LORAZEPAM
     Indication: CLONUS
     Dosage: 5 MG, UNK
     Route: 030

REACTIONS (4)
  - Endotracheal intubation [Unknown]
  - Drug ineffective [Unknown]
  - Depressed level of consciousness [Unknown]
  - Dystonia [Unknown]
